FAERS Safety Report 5082499-3 (Version None)
Quarter: 2006Q3

REPORT INFORMATION
  Report Type: 
  Country: None (occurrence: None)
  Receive Date: 20060814
  Receipt Date: 20060727
  Transmission Date: 20061208
  Serious: Yes (Hospitalization, Other)
  Sender: FDA-Public Use
  Company Number: 2006092728

PATIENT
  Age: 78 Year
  Sex: Female
  Weight: 81.6475 kg

DRUGS (2)
  1. SUTENT [Suspect]
     Indication: GASTROINTESTINAL STROMAL TUMOUR
     Dosage: ORAL
     Route: 048
     Dates: start: 20060701
  2. COUMADIN [Concomitant]

REACTIONS (12)
  - ABDOMINAL PAIN UPPER [None]
  - CONSTIPATION [None]
  - DIARRHOEA [None]
  - ERYTHEMA [None]
  - FATIGUE [None]
  - NAUSEA [None]
  - PAIN [None]
  - PYREXIA [None]
  - RASH [None]
  - RECTAL HAEMORRHAGE [None]
  - VOMITING [None]
  - YELLOW SKIN [None]
